FAERS Safety Report 5401445-3 (Version None)
Quarter: 2007Q3

REPORT INFORMATION
  Report Type: 
  Country: None (occurrence: None)
  Receive Date: 20070731
  Receipt Date: 20070731
  Transmission Date: 20080115
  Serious: Yes (Death)
  Sender: FDA-Public Use
  Company Number: A0667062A

PATIENT
  Age: 74 Year

DRUGS (1)
  1. NICODERM CQ [Suspect]
     Indication: SMOKING CESSATION THERAPY
     Route: 062

REACTIONS (5)
  - ADVERSE EVENT [None]
  - COMA [None]
  - DEATH [None]
  - GASTRIC ULCER [None]
  - INTENTIONAL DRUG MISUSE [None]
